FAERS Safety Report 8827611 (Version 1)
Quarter: 2012Q4

REPORT INFORMATION
  Report Type: 
  Country: US (occurrence: US)
  Receive Date: 20121005
  Receipt Date: 20121005
  Transmission Date: 20130627
  Serious: No
  Sender: FDA-Public Use
  Company Number: US-COVIDIEN/TYCO HEALTHCARE/MALLINCKRODT-T201102656

PATIENT
  Age: 48 Year
  Sex: Female
  Weight: 112.2 kg

DRUGS (13)
  1. MD-76R [Suspect]
     Indication: ARTERIOGRAM
     Dosage: 150 ml, single
     Route: 042
     Dates: start: 20111115, end: 20111115
  2. HYDROCHLOROTHIAZID [Concomitant]
     Dosage: UNK
  3. CARDIZEM                           /00489701/ [Concomitant]
     Dosage: UNK
  4. ZANTAC [Concomitant]
     Dosage: UNK
  5. PLAVIX [Concomitant]
     Dosage: UNK
  6. ZOCOR [Concomitant]
     Dosage: UNK
  7. VASCOR                             /00489602/ [Concomitant]
     Dosage: UNK
  8. LASIX                              /00032601/ [Concomitant]
     Dosage: UNK
  9. K-DUR [Concomitant]
     Dosage: UNK
  10. MULTIVITAMIN                       /00831701/ [Concomitant]
     Dosage: UNK
  11. ALLOPURINOL [Concomitant]
     Dosage: UNK
  12. LABETALOL [Concomitant]
     Dosage: UNK
  13. NEXIUM                             /01479302/ [Concomitant]
     Dosage: UNK

REACTIONS (1)
  - Burning sensation [Recovered/Resolved]
